FAERS Safety Report 6273623-5 (Version None)
Quarter: 2009Q3

REPORT INFORMATION
  Report Type: 
  Country: None (occurrence: None)
  Receive Date: 20090715
  Receipt Date: 20090702
  Transmission Date: 20100115
  Serious: Yes (Death, Other)
  Sender: FDA-Public Use
  Company Number: 2009AL004499

PATIENT
  Age: 33 Year
  Sex: Female

DRUGS (4)
  1. VENLAFAXINE HCL [Suspect]
     Dosage: 225 MG UNKNOWN PO
     Route: 048
     Dates: start: 20040101
  2. VALPROIC ACID [Concomitant]
  3. ATENOLOL [Concomitant]
  4. CLOZARIL [Concomitant]

REACTIONS (4)
  - CONVULSION [None]
  - DRUG TOXICITY [None]
  - FALL [None]
  - OVERDOSE [None]
